FAERS Safety Report 18313580 (Version 1)
Quarter: 2020Q3

REPORT INFORMATION
  Report Type: Spontaneous
  Country: US (occurrence: US)
  Receive Date: 20200925
  Receipt Date: 20200925
  Transmission Date: 20201103
  Serious: No
  Sender: FDA-Public Use
  Company Number: US-TEVA-2020-US-1831877

PATIENT
  Age: 76 Year
  Sex: Male

DRUGS (13)
  1. COPAXONE [Suspect]
     Active Substance: GLATIRAMER ACETATE
     Indication: MULTIPLE SCLEROSIS
     Dosage: PATIENT STARTED DAILY DOSING
     Route: 065
     Dates: start: 2005
  2. VITAMIN B12 [Concomitant]
     Active Substance: CYANOCOBALAMIN
  3. LISINOPRIL. [Concomitant]
     Active Substance: LISINOPRIL
     Indication: HYPERTENSION
  4. ALFUZOSIN [Concomitant]
     Active Substance: ALFUZOSIN
     Indication: PROSTATIC DISORDER
  5. ALPRAZOLAM. [Concomitant]
     Active Substance: ALPRAZOLAM
     Route: 065
  6. NIACINAMIDE OINTMENT [Concomitant]
     Indication: PSORIASIS
     Dosage: 13 YEARS
  7. COPAXONE [Suspect]
     Active Substance: GLATIRAMER ACETATE
     Route: 065
     Dates: start: 202003
  8. ALPRAZOLAM. [Concomitant]
     Active Substance: ALPRAZOLAM
     Indication: ANXIETY
     Route: 065
  9. SULINDAC. [Concomitant]
     Active Substance: SULINDAC
     Indication: ARTHROPATHY
  10. BETAMETHASONE. [Concomitant]
     Active Substance: BETAMETHASONE
     Indication: PSORIASIS
  11. OMEPRAZOLE. [Concomitant]
     Active Substance: OMEPRAZOLE
     Dosage: ON IT FOR MORE THAN 16 YEARS
  12. VITAMIN B3 [Concomitant]
     Active Substance: NIACIN
  13. ASPIRIN. [Concomitant]
     Active Substance: ASPIRIN
     Dosage: TOOK 1 RECENTLY

REACTIONS (3)
  - Red blood cell count decreased [Unknown]
  - Peripheral swelling [Unknown]
  - Skin reaction [Unknown]

NARRATIVE: CASE EVENT DATE: 2007
